FAERS Safety Report 25671200 (Version 2)
Quarter: 2025Q3

REPORT INFORMATION
  Report Type: Report from Study
  Country: JP (occurrence: JP)
  Receive Date: 20250812
  Receipt Date: 20250925
  Transmission Date: 20251021
  Serious: Yes (Life-Threatening, Other)
  Sender: SANOFI AVENTIS
  Company Number: JP-DialogSolutions-SAAVPROD-PI807697-C1

PATIENT
  Age: 62 Year
  Sex: Male

DRUGS (7)
  1. ISATUXIMAB [Suspect]
     Active Substance: ISATUXIMAB
     Indication: Plasma cell myeloma
     Route: 065
     Dates: start: 20171130, end: 202203
  2. DEXAMETHASONE [Suspect]
     Active Substance: DEXAMETHASONE
     Indication: Plasma cell myeloma
     Dosage: 20 MG, QW
     Route: 065
     Dates: start: 20140812
  3. DEXAMETHASONE [Suspect]
     Active Substance: DEXAMETHASONE
     Indication: Plasma cell myeloma
     Dosage: 8 MG, QW IN 28-DAY CYCLES
     Route: 065
     Dates: start: 20160824
  4. DEXAMETHASONE [Suspect]
     Active Substance: DEXAMETHASONE
     Route: 065
     Dates: start: 201711, end: 202203
  5. POMALIDOMIDE [Suspect]
     Active Substance: POMALIDOMIDE
     Indication: Plasma cell myeloma
     Dosage: 4 MG, QD
     Route: 065
     Dates: start: 20171130
  6. POMALIDOMIDE [Suspect]
     Active Substance: POMALIDOMIDE
     Dosage: 3 MG, QD
     Route: 065
     Dates: start: 20180416
  7. POMALIDOMIDE [Suspect]
     Active Substance: POMALIDOMIDE
     Dosage: 2 MG, QD
     Route: 065
     Dates: start: 201807, end: 202203

REACTIONS (19)
  - Neutropenia [Unknown]
  - Tremor [Unknown]
  - Cataract [Recovered/Resolved]
  - Pneumonia [Unknown]
  - Muscle spasms [Unknown]
  - Pharyngitis [Unknown]
  - Upper respiratory tract infection [Unknown]
  - Nasopharyngitis [Unknown]
  - Influenza [Unknown]
  - Stomatitis [Unknown]
  - Oral herpes [Unknown]
  - Acute sinusitis [Unknown]
  - Chronic sinusitis [Unknown]
  - Oropharyngeal pain [Unknown]
  - Tongue injury [Unknown]
  - Myalgia [Unknown]
  - Infusion site extravasation [Unknown]
  - Rash [Unknown]
  - Hypertension [Unknown]

NARRATIVE: CASE EVENT DATE: 20180401
